FAERS Safety Report 5385029-1 (Version None)
Quarter: 2007Q3

REPORT INFORMATION
  Report Type: 
  Country: None (occurrence: None)
  Receive Date: 20070712
  Receipt Date: 20070705
  Transmission Date: 20080115
  Serious: Yes (Hospitalization, Other)
  Sender: FDA-Public Use
  Company Number: PHHO2006DE14432

PATIENT
  Age: 48 Year
  Sex: Male
  Weight: 80 kg

DRUGS (4)
  1. SANDIMMUNE [Suspect]
     Indication: LIVER TRANSPLANT
     Dosage: 500 MG, BID
     Route: 048
     Dates: start: 20060829, end: 20070525
  2. SANDIMMUNE [Suspect]
     Dosage: 300 MG/DAY
     Route: 048
  3. SANDIMMUNE [Suspect]
     Dosage: 275 MG/DAY
     Route: 048
  4. SANDIMMUNE [Suspect]
     Indication: LIVER TRANSPLANT
     Route: 042
     Dates: start: 20060813

REACTIONS (14)
  - ALANINE AMINOTRANSFERASE INCREASED [None]
  - ASPARTATE AMINOTRANSFERASE INCREASED [None]
  - BILE DUCT OBSTRUCTION [None]
  - BILE DUCT STENT INSERTION [None]
  - CHOLANGITIS [None]
  - CHOLESTASIS [None]
  - DISEASE PROGRESSION [None]
  - ENDOSCOPIC RETROGRADE CHOLANGIOPANCREATOGRAPHY [None]
  - HEPATIC CIRRHOSIS [None]
  - HEPATIC ENZYME INCREASED [None]
  - HEPATITIS C [None]
  - LIVER TRANSPLANT [None]
  - LIVER TRANSPLANT REJECTION [None]
  - RENAL FAILURE [None]
